FAERS Safety Report 21023047 (Version 2)
Quarter: 2022Q3

REPORT INFORMATION
  Report Type: Spontaneous
  Country: CA (occurrence: CA)
  Receive Date: 20220629
  Receipt Date: 20220727
  Transmission Date: 20221027
  Serious: Yes (Other)
  Sender: FDA-Public Use
  Company Number: CA-PFIZER INC-202101696816

PATIENT
  Age: 64 Year
  Sex: Female
  Weight: 75.737 kg

DRUGS (31)
  1. XELJANZ [Suspect]
     Active Substance: TOFACITINIB CITRATE
     Indication: Rheumatoid arthritis
     Dosage: 5 MG (1 TABLET), 2X/DAY
  2. OXYCODONE HYDROCHLORIDE [Concomitant]
     Active Substance: OXYCODONE HYDROCHLORIDE
     Dosage: 5 MG 1 TABLET, AS NEEDED (EVERY 3-4 HOURS )
  3. CLOTRIMAZOLE [Concomitant]
     Active Substance: CLOTRIMAZOLE
     Dosage: UNK, CREAM 2X/DAY (FOR 2-4 WEEKS)
  4. HYDROMORPHONE [Concomitant]
     Active Substance: HYDROMORPHONE
     Indication: Pain
     Dosage: 3 MG 1 CAPSULE, 2X/DAY (EVERY 12 HOURS)
  5. AG ZOPICLONE [Concomitant]
     Indication: Insomnia
     Dosage: 7.5 MG 1 TABLET, AS NEEDED (30MIN BEFORE BEDTIME)
  6. ASPIRIN [Concomitant]
     Active Substance: ASPIRIN
     Indication: Cardiovascular disorder
     Dosage: 80 MG 1 TABLET, DAILY AT BREAKFAST
  7. ALBUTEROL SULFATE [Concomitant]
     Active Substance: ALBUTEROL SULFATE
     Dosage: 2 INHALATIONS 4 X /DAY AS NEEDED
  8. PREDNISONE [Concomitant]
     Active Substance: PREDNISONE
     Dosage: 3 TABLETS DAILY FOR 7 DAYS, THEN 1 TABLET AND A HALF DAILY FOR 7 DAYS THEN 5MG DAILY
  9. ROSUVASTATIN [Concomitant]
     Active Substance: ROSUVASTATIN
     Indication: Lipid metabolism disorder
     Dosage: 20 MG 1 TABLET, DAILY (AT BEDTIME )
  10. PMS ISMN [Concomitant]
     Dosage: 60 MG 1 TABLET, DAILY (IN THE MORNING)
  11. RAN EZETIMIBE [Concomitant]
     Indication: Lipid metabolism disorder
     Dosage: 10 MG (TABLET), DAILY AT BEDTIME
  12. LAX A DAY PHARMA [Concomitant]
     Dosage: 17 MG, DAILY DILUDED IN A BIG GLASS OF WATER
  13. NASONEX [Concomitant]
     Active Substance: MOMETASONE FUROATE
     Dosage: 2 SPRAYS, DAILY IN EACH NOSTRIL AS NEEDED
     Route: 045
  14. BREO ELLIPTA [Concomitant]
     Active Substance: FLUTICASONE FUROATE\VILANTEROL TRIFENATATE
     Dosage: 20+100MCG ONE ORAL INHALATION 1X/DAY, RINSE MOUTH AFTER USE
     Route: 048
  15. BISOPROLOL [Concomitant]
     Active Substance: BISOPROLOL
     Dosage: 2.5 MG (HALF TABLET), DAILY AT BREAKFAST)
  16. SYNTHROID [Concomitant]
     Active Substance: LEVOTHYROXINE SODIUM
     Dosage: 88 UG (1 TABLET), 1X/DAY AT BREAKFAST
  17. CANDESARTAN [Concomitant]
     Active Substance: CANDESARTAN
     Dosage: 8 MG (1 TABLET), DAILY AT BREAKFAST (VIAL)
  18. METHOTREXATE [Concomitant]
     Active Substance: METHOTREXATE
     Dosage: 5 MG (2 TABLETS), WEEKLY
  19. FOLIC ACID [Concomitant]
     Active Substance: FOLIC ACID
     Dosage: 1 DF (TABLET), 1X/DAY THE DAYS FOLLOWING METHOTREXATE
  20. ACETAMINOPHEN [Concomitant]
     Active Substance: ACETAMINOPHEN
     Indication: Pyrexia
     Dosage: AS NEEDED (1-2 TABLET 2X/DAY)
  21. ACETAMINOPHEN [Concomitant]
     Active Substance: ACETAMINOPHEN
     Indication: Pain
  22. LUTEIN\MINERALS\VITAMINS\ZEAXANTHIN [Concomitant]
     Active Substance: LUTEIN\MINERALS\VITAMINS\ZEAXANTHIN
     Dosage: 1 DF (TABLET), 2X/DAY
  23. CI CAL D [Concomitant]
     Indication: Osteoporosis
     Dosage: 1 DF (TABLET) 2X/DAY AT BREAKFAST AND DINNER
  24. JAMP CLINDAMYCIN [Concomitant]
     Indication: Prophylaxis
     Dosage: 2 CAPSULES 1 HOUR PRIOR TO OPERATION
  25. URISEC [Concomitant]
     Dosage: CREAM, APPLY ONCE A DAY ON THE PLANTAR SURFACE
  26. ANODAN-HC [Concomitant]
     Indication: Pain
     Dosage: APPLY ON THE HEMORROIDS AS NEEDED (IN THE MORRING, AFTERNOON AND AFTER BOWEL MOVEMENT)
     Route: 054
  27. ANODAN-HC [Concomitant]
     Indication: Haemorrhoids
  28. GEN-NITRO [Concomitant]
     Indication: Angina pectoris
     Dosage: UNK, AS NEEDED (ORAL SPRAY EVERY 5 MINUTES)
     Route: 048
  29. RISEDRONATE SODIUM [Concomitant]
     Active Substance: RISEDRONATE SODIUM
     Indication: Osteoporosis
     Dosage: 1 DF (TABLET), WEEKLY AT DAWN, AT LEAST 30 MINUTES BEFORE BREAKFAST
  30. ESOMEPRAZOLE [Concomitant]
     Active Substance: ESOMEPRAZOLE
     Indication: Gastrooesophageal reflux disease
     Dosage: 1 DF(TABLET), 2X/DAY MORNING AND NIGHT
  31. CHOLECALCIFEROL [Concomitant]
     Active Substance: CHOLECALCIFEROL
     Dosage: 1 DF (TABLET), 1 TIME PER WEEK WITH FOOD

REACTIONS (9)
  - Lip and/or oral cavity cancer [Not Recovered/Not Resolved]
  - Precancerous skin lesion [Recovered/Resolved]
  - Urinary tract infection [Unknown]
  - Leukoplakia oral [Unknown]
  - Hordeolum [Unknown]
  - Eyelid infection [Unknown]
  - Abscess of eyelid [Unknown]
  - Eye infection [Unknown]
  - Bronchitis [Unknown]

NARRATIVE: CASE EVENT DATE: 20210701
